FAERS Safety Report 8258743-8 (Version None)
Quarter: 2012Q2

REPORT INFORMATION
  Report Type: 
  Country: None (occurrence: None)
  Receive Date: 20120404
  Receipt Date: 20120404
  Transmission Date: 20120825
  Serious: Yes (Disabling)
  Sender: FDA-Public Use
  Company Number: None

PATIENT
  Sex: Female
  Weight: 97.975 kg

DRUGS (1)
  1. RECLAST [Suspect]
     Indication: OSTEOPENIA
     Route: 042
     Dates: start: 20080801, end: 20100801

REACTIONS (3)
  - PAIN [None]
  - IMPAIRED HEALING [None]
  - TIBIA FRACTURE [None]
